FAERS Safety Report 7785277-7 (Version None)
Quarter: 2011Q3

REPORT INFORMATION
  Report Type: 
  Country: None (occurrence: None)
  Receive Date: 20110929
  Receipt Date: 20110928
  Transmission Date: 20111222
  Serious: Yes (Death, Other)
  Sender: FDA-Public Use
  Company Number: PHHY2011BR85827

PATIENT
  Age: 84 Year
  Sex: Male

DRUGS (1)
  1. FORMOTEROL FUMARATE [Suspect]
     Dosage: 12/400 MCG

REACTIONS (1)
  - EMPHYSEMA [None]
